FAERS Safety Report 24733649 (Version 1)
Quarter: 2024Q4

REPORT INFORMATION
  Report Type: Spontaneous
  Country: US (occurrence: US)
  Receive Date: 20241213
  Receipt Date: 20241213
  Transmission Date: 20250115
  Serious: No
  Sender: NOVO NORDISK
  Company Number: US-NOVOPROD-1247651

PATIENT
  Sex: Male

DRUGS (1)
  1. LEVEMIR [Suspect]
     Active Substance: INSULIN DETEMIR
     Indication: Product used for unknown indication
     Dosage: 50 IU, BID
     Route: 058
     Dates: start: 2008

REACTIONS (4)
  - Arthritis [Unknown]
  - Injection site pain [Unknown]
  - Injury associated with device [Unknown]
  - Device difficult to use [Unknown]
